FAERS Safety Report 11702878 (Version 2)
Quarter: 2015Q4

REPORT INFORMATION
  Report Type: Spontaneous
  Country: US (occurrence: US)
  Receive Date: 20151105
  Receipt Date: 20151118
  Transmission Date: 20160304
  Serious: Yes (Other)
  Sender: FDA-Public Use
  Company Number: US-SMITH AND NEPHEW, INC-2015SMT00465

PATIENT
  Age: 69 Year
  Sex: Male
  Weight: 113.38 kg

DRUGS (6)
  1. VICODIN [Concomitant]
     Active Substance: ACETAMINOPHEN\HYDROCODONE BITARTRATE
     Dosage: 2 TABLETS, 4X/DAY
  2. REGRANEX [Suspect]
     Active Substance: BECAPLERMIN
     Indication: WOUND
     Dosage: 1 CM, 1X/DAY
     Route: 061
     Dates: start: 20151006, end: 20151018
  3. LEXAPRO [Concomitant]
     Active Substance: ESCITALOPRAM OXALATE
  4. FENTANYL. [Concomitant]
     Active Substance: FENTANYL
     Dosage: 175 ?G, EVERY 48 HOURS
     Route: 062
  5. GABAPENTIN. [Concomitant]
     Active Substance: GABAPENTIN
     Dosage: 1200 MG, 2X/DAY
  6. KLONOPIN [Concomitant]
     Active Substance: CLONAZEPAM
     Dosage: 10 MG, AS NEEDED

REACTIONS (3)
  - Wound complication [Unknown]
  - Surgery [Unknown]
  - Skin graft [None]

NARRATIVE: CASE EVENT DATE: 201510
